FAERS Safety Report 5702545-0 (Version None)
Quarter: 2008Q2

REPORT INFORMATION
  Report Type: 
  Country: None (occurrence: None)
  Receive Date: 20080411
  Receipt Date: 20070215
  Transmission Date: 20081010
  Serious: No
  Sender: FDA-Public Use
  Company Number: US-ASTRAZENECA-2007UW03046

PATIENT

DRUGS (2)
  1. TENORMIN [Suspect]
     Route: 048
  2. UROXATRAL [Interacting]

REACTIONS (2)
  - DRUG INTERACTION [None]
  - HYPERTENSION [None]
